FAERS Safety Report 6678283-7 (Version None)
Quarter: 2010Q2

REPORT INFORMATION
  Report Type: 
  Country: None (occurrence: None)
  Receive Date: 20100408
  Receipt Date: 20100406
  Transmission Date: 20101027
  Serious: Yes (Death, Hospitalization)
  Sender: FDA-Public Use
  Company Number: 2010AL002012

PATIENT
  Age: 75 Year
  Sex: Male

DRUGS (4)
  1. EPIRUBICIN HYDROCHLORIDE INJECTION, [Suspect]
     Indication: GASTRIC CANCER STAGE IV
  2. CISPLATIN [Concomitant]
  3. LEUCOVORIN CALCIUM [Concomitant]
  4. FLUOROURACIL [Concomitant]

REACTIONS (6)
  - ANXIETY [None]
  - ATRIAL FIBRILLATION [None]
  - CARDIOTOXICITY [None]
  - EXERCISE TOLERANCE DECREASED [None]
  - PRURITUS GENERALISED [None]
  - SKIN LESION [None]
